FAERS Safety Report 20801803 (Version 1)
Quarter: 2022Q2

REPORT INFORMATION
  Report Type: Spontaneous
  Country: FR (occurrence: FR)
  Receive Date: 20220509
  Receipt Date: 20220509
  Transmission Date: 20220721
  Serious: Yes (Life-Threatening, Hospitalization, Other)
  Sender: FDA-Public Use
  Company Number: FR-MLMSERVICE-20220429-3517440-1

PATIENT
  Age: 55 Year
  Sex: Male
  Weight: 78 kg

DRUGS (5)
  1. QUETIAPINE [Suspect]
     Active Substance: QUETIAPINE
     Indication: Persistent depressive disorder
     Dosage: STRENGTH: 50 MG, 1 G OF QUETIAPINE INSTEAD OF 120 MG AND 100 MG DAILY
     Dates: start: 201803
  2. DULOXETINE [Suspect]
     Active Substance: DULOXETINE
     Indication: Persistent depressive disorder
     Dosage: DOSES INGESTED WERE BETWEEN 1.6 G AND 2.4 G, STRENGTH: 60 MG
     Dates: start: 201803
  3. CYAMEMAZINE [Concomitant]
     Active Substance: CYAMEMAZINE
     Indication: Persistent depressive disorder
     Dosage: STRENGTH: 25 MG
  4. DIAZEPAM [Concomitant]
     Active Substance: DIAZEPAM
     Indication: Persistent depressive disorder
     Dosage: SCORED TABLET, STRENGTH: 10 MG
  5. LORMETAZEPAM [Concomitant]
     Active Substance: LORMETAZEPAM
     Indication: Persistent depressive disorder
     Dosage: SCORED TABLET, STRENGTH: 2 MG

REACTIONS (10)
  - Toxicity to various agents [Unknown]
  - Hypotension [Recovered/Resolved]
  - Intentional overdose [Unknown]
  - Nervous system disorder [Recovered/Resolved]
  - Cardiac failure [Recovered/Resolved]
  - Miosis [Recovered/Resolved]
  - Respiratory failure [Recovered/Resolved]
  - Hyperhidrosis [Unknown]
  - Lactic acidosis [Recovered/Resolved]
  - Sinus tachycardia [Recovered/Resolved]

NARRATIVE: CASE EVENT DATE: 20180301
